FAERS Safety Report 6546797-6 (Version None)
Quarter: 2010Q1

REPORT INFORMATION
  Report Type: 
  Country: None (occurrence: None)
  Receive Date: 20100119
  Receipt Date: 20100111
  Transmission Date: 20100710
  Serious: Yes (Other)
  Sender: FDA-Public Use
  Company Number: TRP_06464_2009

PATIENT
  Sex: Male
  Weight: 79.3795 kg

DRUGS (5)
  1. RIBAPAK (NOT SPECIFIED) [Suspect]
     Indication: HEPATITIS C
     Dosage: 600 MG BID ORAL
     Route: 048
     Dates: start: 20090513, end: 20091021
  2. PEGASYS [Suspect]
     Indication: HEPATITIS C
     Dosage: 180 UG QD SUBCUTANEOUS
     Route: 058
     Dates: start: 20090513, end: 20091021
  3. HYDROCHLOROTHIAZIDE [Concomitant]
  4. METOPROLOL [Concomitant]
  5. LISINOPRIL [Concomitant]

REACTIONS (9)
  - ALANINE AMINOTRANSFERASE INCREASED [None]
  - ALOPECIA [None]
  - ASPARTATE AMINOTRANSFERASE INCREASED [None]
  - FULL BLOOD COUNT ABNORMAL [None]
  - HAEMOLYTIC ANAEMIA [None]
  - INFLUENZA LIKE ILLNESS [None]
  - INSOMNIA [None]
  - THROMBOCYTOPENIA [None]
  - VITREOUS DETACHMENT [None]
